FAERS Safety Report 24784085 (Version 1)
Quarter: 2024Q4

REPORT INFORMATION
  Report Type: Spontaneous
  Country: US (occurrence: US)
  Receive Date: 20241227
  Receipt Date: 20241227
  Transmission Date: 20250115
  Serious: No
  Sender: JOHNSON AND JOHNSON
  Company Number: US-VIIV HEALTHCARE-US2024157442

PATIENT
  Age: 30 Year
  Sex: Male

DRUGS (4)
  1. RILPIVIRINE [Suspect]
     Active Substance: RILPIVIRINE
     Indication: HIV infection
     Dosage: UNK
     Route: 065
     Dates: start: 20241212
  2. CABOTEGRAVIR [Suspect]
     Active Substance: CABOTEGRAVIR
     Indication: HIV infection
     Dosage: UNK
     Route: 065
     Dates: start: 20241212
  3. LENACAPAVIR [Suspect]
     Active Substance: LENACAPAVIR
     Indication: HIV infection
     Dosage: UNK
     Route: 065
  4. IBALIZUMAB [Suspect]
     Active Substance: IBALIZUMAB
     Indication: HIV infection
     Dosage: UNK
     Route: 065

REACTIONS (3)
  - Product use in unapproved therapeutic environment [Unknown]
  - Off label use [Unknown]
  - Labelled drug-drug interaction medication error [Unknown]
